FAERS Safety Report 5375177-4 (Version None)
Quarter: 2007Q2

REPORT INFORMATION
  Report Type: 
  Country: None (occurrence: None)
  Receive Date: 20070629
  Receipt Date: 20060509
  Transmission Date: 20071010
  Serious: No
  Sender: FDA-Public Use
  Company Number: US-ASTRAZENECA-2006UW09145

PATIENT
  Age: 50 Year
  Sex: Female

DRUGS (1)
  1. NOLVADEX [Suspect]
     Route: 048
     Dates: start: 20050101

REACTIONS (2)
  - DELUSION [None]
  - PARANOIA [None]
